FAERS Safety Report 4686264-8 (Version None)
Quarter: 2005Q2

REPORT INFORMATION
  Report Type: 
  Country: None (occurrence: None)
  Receive Date: 20050609
  Receipt Date: 20050527
  Transmission Date: 20051028
  Serious: Yes (Hospitalization)
  Sender: FDA-Public Use
  Company Number: FR-GLAXOSMITHKLINE-B0383462A

PATIENT
  Sex: Male

DRUGS (5)
  1. RETROVIR [Suspect]
     Indication: ANTIVIRAL PROPHYLAXIS
     Route: 048
     Dates: start: 19971001
  2. EPIVIR [Suspect]
     Indication: ANTIVIRAL PROPHYLAXIS
     Route: 048
     Dates: start: 19971001
  3. RETROVIR [Suspect]
     Dates: start: 19971017
  4. RETROVIR [Suspect]
     Indication: HIV INFECTION
     Dates: start: 19970801
  5. EPIVIR [Suspect]
     Indication: HIV INFECTION
     Dates: start: 19970801

REACTIONS (7)
  - ANAEMIA [None]
  - CONJUNCTIVITIS [None]
  - DRUG EXPOSURE DURING PREGNANCY [None]
  - EYE DISCHARGE [None]
  - EYELID OEDEMA [None]
  - HYPERLACTACIDAEMIA [None]
  - KERATITIS [None]
